FAERS Safety Report 10639045 (Version 2)
Quarter: 2015Q1

REPORT INFORMATION
  Report Type: Spontaneous
  Country: FR (occurrence: FR)
  Receive Date: 20141208
  Receipt Date: 20150204
  Transmission Date: 20150720
  Serious: Yes (Other)
  Sender: FDA-Public Use
  Company Number: FR-BAUSCH-BL-2014-008678

PATIENT
  Age: 0 Day
  Sex: Female

DRUGS (1)
  1. ZOVIRAX [Suspect]
     Active Substance: ACYCLOVIR
     Indication: HERPES OPHTHALMIC
     Route: 047
     Dates: start: 20140922, end: 20140925

REACTIONS (3)
  - Drug dispensing error [Recovered/Resolved]
  - Medication error [Recovered/Resolved]
  - Eye pain [Recovered/Resolved]

NARRATIVE: CASE EVENT DATE: 20140922
